FAERS Safety Report 10104044 (Version 1)
Quarter: 2014Q2

REPORT INFORMATION
  Report Type: Spontaneous
  Country: GB (occurrence: GB)
  Receive Date: 20140424
  Receipt Date: 20140424
  Transmission Date: 20141212
  Serious: Yes (Other)
  Sender: FDA-Public Use
  Company Number: GB-WATSON-2014-08072

PATIENT
  Age: 48 Year
  Sex: Male
  Weight: 74 kg

DRUGS (2)
  1. CITALOPRAM (UNKNOWN) [Suspect]
     Indication: DEPRESSION
     Dosage: 20 MG, UNKNOWN;STARTED ON 10MG ON 10/3/14 - INCREASED TO 20MG ON 26/3/14
     Route: 048
     Dates: start: 20140326
  2. CITALOPRAM (UNKNOWN) [Suspect]
     Dosage: 10 MG, UNKNOWN;STARTED ON 10MG ON 10/3/14 - INCREASED TO 20MG ON 26/3/14
     Route: 048
     Dates: start: 20140310, end: 20140326

REACTIONS (1)
  - Priapism [Recovered/Resolved]
